FAERS Safety Report 9179284 (Version 1)
Quarter: 2013Q1

REPORT INFORMATION
  Report Type: Spontaneous
  Country: US (occurrence: US)
  Receive Date: 20130321
  Receipt Date: 20130321
  Transmission Date: 20140127
  Serious: Yes (Hospitalization)
  Sender: FDA-Public Use
  Company Number: US-BAYER-2013-032586

PATIENT
  Age: 34 Year
  Sex: Female
  Weight: 81.63 kg

DRUGS (5)
  1. YASMIN [Suspect]
     Indication: MENORRHAGIA
     Dosage: UNK
  2. YASMIN [Suspect]
     Indication: DYSMENORRHOEA
  3. NABUMETONE [Concomitant]
     Dosage: UNK
     Dates: start: 200511
  4. TOPAMAX [Concomitant]
     Dosage: UNK
  5. IMITREX [Concomitant]
     Dosage: UNK

REACTIONS (3)
  - Thrombophlebitis superficial [None]
  - Pelvic venous thrombosis [None]
  - Deep vein thrombosis [None]
